FAERS Safety Report 10183859 (Version 2)
Quarter: 2014Q3

REPORT INFORMATION
  Report Type: Spontaneous
  Country: US (occurrence: US)
  Receive Date: 20140520
  Receipt Date: 20140710
  Transmission Date: 20150326
  Serious: Yes (Life-Threatening, Hospitalization)
  Sender: FDA-Public Use
  Company Number: US-BAYER-2014-074235

PATIENT
  Age: 51 Year
  Sex: Female
  Weight: 72.56 kg

DRUGS (7)
  1. MIRENA [Suspect]
     Active Substance: LEVONORGESTREL
     Indication: CONTRACEPTION
     Dosage: 20 MCG/24HR, CONT
     Route: 015
     Dates: start: 20070927, end: 20100714
  2. LISINOPRIL. [Concomitant]
     Active Substance: LISINOPRIL
     Indication: HYPERTENSION
     Dosage: 20 MG, DAILY
     Route: 048
     Dates: start: 2001
  3. AMBIEN [Concomitant]
     Active Substance: ZOLPIDEM TARTRATE
     Dosage: 10 MG, UNK
  4. HYDROCHLOROTHIAZIDE. [Concomitant]
     Active Substance: HYDROCHLOROTHIAZIDE
     Dosage: 25 MG, DAILY
     Route: 048
  5. SYNTHROID [Concomitant]
     Active Substance: LEVOTHYROXINE SODIUM
     Indication: THYROIDECTOMY
     Dosage: 0.125 MG, UNK
     Route: 048
     Dates: start: 1974
  6. LUNESTA [Concomitant]
     Active Substance: ESZOPICLONE
     Dosage: 3 MG, Q HS
     Route: 048
  7. MIRENA [Suspect]
     Active Substance: LEVONORGESTREL
     Indication: MENORRHAGIA

REACTIONS (9)
  - Abdominal pain [None]
  - Anhedonia [None]
  - Uterine perforation [None]
  - General physical health deterioration [None]
  - Depression [None]
  - Injury [None]
  - Anxiety [None]
  - Infection [None]
  - Emotional distress [None]

NARRATIVE: CASE EVENT DATE: 201007
